FAERS Safety Report 4347705-9 (Version None)
Quarter: 2004Q1

REPORT INFORMATION
  Report Type: 
  Country: None (occurrence: None)
  Receive Date: 20040325
  Receipt Date: 20040105
  Transmission Date: 20041129
  Serious: No
  Sender: FDA-Public Use
  Company Number: USA031254556

PATIENT
  Age: 77 Year
  Sex: Female

DRUGS (4)
  1. FORTEO [Suspect]
     Indication: OSTEOPOROSIS
     Dates: start: 20031101
  2. ICAPS [Concomitant]
  3. HIGH BLOOD PRESSURE [Concomitant]
  4. CHOLESTEROL MEDICATION [Concomitant]

REACTIONS (6)
  - ARTHRALGIA [None]
  - BACK PAIN [None]
  - CHROMATURIA [None]
  - FEELING ABNORMAL [None]
  - PAIN [None]
  - PAIN IN EXTREMITY [None]
